FAERS Safety Report 16271305 (Version 1)
Quarter: 2019Q2

REPORT INFORMATION
  Report Type: Other
  Country: US (occurrence: US)
  Receive Date: 20190503
  Receipt Date: 20190503
  Transmission Date: 20190711
  Serious: Yes (Death, Life-Threatening, Hospitalization, Congenital Anomaly)
  Sender: FDA-Public Use
  Company Number: US-NOSTRUM LABORATORIES, INC.-2066593

PATIENT
  Age: 1 Day
  Sex: Male
  Weight: 3.5 kg

DRUGS (1)
  1. MORPHINE SULFATE. [Suspect]
     Active Substance: MORPHINE SULFATE
     Indication: SYSTEMIC MASTOCYTOSIS

REACTIONS (5)
  - Neonatal respiratory distress [Fatal]
  - Hypotension [Fatal]
  - Multiple organ dysfunction syndrome [Fatal]
  - Pulmonary hypertension [Fatal]
  - Coagulopathy [Fatal]
